FAERS Safety Report 8102306-1 (Version None)
Quarter: 2012Q1

REPORT INFORMATION
  Report Type: 
  Country: None (occurrence: None)
  Receive Date: 20120201
  Receipt Date: 20120127
  Transmission Date: 20120608
  Serious: No
  Sender: FDA-Public Use
  Company Number: US-PFIZER INC-2012023403

PATIENT
  Sex: Female
  Weight: 90.7 kg

DRUGS (1)
  1. IBUPROFEN (ADVIL) [Suspect]
     Dosage: UNK, 4X/DAY
     Route: 065
     Dates: start: 20111201

REACTIONS (1)
  - DRUG INEFFECTIVE [None]
